FAERS Safety Report 24388323 (Version 1)
Quarter: 2024Q4

REPORT INFORMATION
  Report Type: Spontaneous
  Country: FR (occurrence: FR)
  Receive Date: 20241002
  Receipt Date: 20241002
  Transmission Date: 20250114
  Serious: Yes (Other)
  Sender: GUERBET
  Company Number: FR-GUERBETG-FR-20240342

PATIENT

DRUGS (1)
  1. DOTAREM [Suspect]
     Active Substance: GADOTERATE MEGLUMINE
     Indication: Product used for unknown indication

REACTIONS (2)
  - Lip oedema [Unknown]
  - Skin reaction [Unknown]

NARRATIVE: CASE EVENT DATE: 20240919
